FAERS Safety Report 16028700 (Version 2)
Quarter: 2019Q1

REPORT INFORMATION
  Report Type: Spontaneous
  Country: JP (occurrence: JP)
  Receive Date: 20190304
  Receipt Date: 20190322
  Transmission Date: 20190418
  Serious: Yes (Death, Hospitalization, Other)
  Sender: FDA-Public Use
  Company Number: JP-009507513-1810JPN001593J

PATIENT
  Age: 75 Year
  Sex: Male
  Weight: 79 kg

DRUGS (9)
  1. SENNOSIDE [Concomitant]
     Active Substance: SENNOSIDES
     Indication: CONSTIPATION
     Dosage: 12 MILLIGRAM, QD
     Route: 048
  2. CONIEL [Concomitant]
     Active Substance: BENIDIPINE HYDROCHLORIDE
     Indication: HYPERTENSION
     Dosage: 4 MILLIGRAM, QD
     Route: 048
  3. CALONAL [Concomitant]
     Active Substance: ACETAMINOPHEN
     Indication: PAIN
     Dosage: 300 MILLIGRAM, PRN
     Route: 048
  4. RYUTAN-SHAKAN-TO [Concomitant]
     Dosage: 5 GRAM, QD
     Route: 048
  5. KEYTRUDA [Suspect]
     Active Substance: PEMBROLIZUMAB
     Indication: TRANSITIONAL CELL CARCINOMA
     Dosage: 200 MILLIGRAM, Q3W
     Route: 041
     Dates: start: 20180611, end: 20180807
  6. VALSARTAN. [Concomitant]
     Active Substance: VALSARTAN
     Indication: HYPERTENSION
     Dosage: 80 MILLIGRAM, QD
     Route: 048
  7. SODIUM PICOSULFATE HYDRATE [Concomitant]
     Active Substance: SODIUM PICOSULFATE
     Indication: CONSTIPATION
     Dosage: UNK
     Route: 048
  8. MAGMITT [Concomitant]
     Active Substance: MAGNESIUM OXIDE
     Indication: CONSTIPATION
     Dosage: 990 MILLIGRAM, QD
     Route: 048
  9. TSUMURA KEISHIKAJUTSUBUTO EXTRACT GRANULES FOR ETHICAL USE [Concomitant]
     Dosage: 5 GRAM, QD
     Route: 048

REACTIONS (5)
  - Brain contusion [Unknown]
  - Hyponatraemia [Recovering/Resolving]
  - Malignant neoplasm progression [Fatal]
  - Hypothyroidism [Recovering/Resolving]
  - Subdural haematoma [Unknown]

NARRATIVE: CASE EVENT DATE: 20180807
